FAERS Safety Report 5259968-6 (Version None)
Quarter: 2007Q1

REPORT INFORMATION
  Report Type: 
  Country: None (occurrence: None)
  Receive Date: 20070307
  Receipt Date: 20070222
  Transmission Date: 20070707
  Serious: No
  Sender: FDA-Public Use
  Company Number: 234674

PATIENT
  Age: 23 Year
  Sex: Female
  Weight: 64 kg

DRUGS (1)
  1. EFALIZUMAB (EFALIZUMAB) PWDR + SOLVENT, INJECTION SOLN, 125MG [Suspect]
     Indication: PSORIASIS
     Dosage: 1 MG, 1/WEEK, SUBCUTANEOUS
     Route: 058
     Dates: start: 20031218

REACTIONS (1)
  - PNEUMONITIS [None]
